FAERS Safety Report 9983015 (Version 1)
Quarter: 2014Q1

REPORT INFORMATION
  Report Type: Spontaneous
  Country: US (occurrence: US)
  Receive Date: 20140307
  Receipt Date: 20140307
  Transmission Date: 20141002
  Serious: No
  Sender: FDA-Public Use
  Company Number: US-ABBVIE-13P-163-1176910-00

PATIENT
  Age: 9 Year
  Sex: Female
  Weight: 24 kg

DRUGS (3)
  1. HUMIRA [Suspect]
     Indication: CROHN^S DISEASE
     Route: 058
     Dates: start: 20130905, end: 20130905
  2. HUMIRA [Suspect]
     Route: 058
     Dates: start: 20130919, end: 201311
  3. HUMIRA [Suspect]
     Route: 058

REACTIONS (5)
  - Viral infection [Recovered/Resolved]
  - Crohn^s disease [Not Recovered/Not Resolved]
  - Pyrexia [Not Recovered/Not Resolved]
  - Abdominal pain [Not Recovered/Not Resolved]
  - Diarrhoea [Not Recovered/Not Resolved]
